FAERS Safety Report 5825015-8 (Version None)
Quarter: 2008Q3

REPORT INFORMATION
  Report Type: 
  Country: None (occurrence: None)
  Receive Date: 20080728
  Receipt Date: 20080716
  Transmission Date: 20090109
  Serious: Yes (Other)
  Sender: FDA-Public Use
  Company Number: BE-PFIZER INC-2008061643

PATIENT
  Age: 52 Year
  Sex: Female
  Weight: 47 kg

DRUGS (1)
  1. CHANTIX [Suspect]
     Route: 048

REACTIONS (3)
  - HYPOALBUMINAEMIA [None]
  - OEDEMA PERIPHERAL [None]
  - PROTEINURIA [None]
